FAERS Safety Report 14822479 (Version 2)
Quarter: 2018Q2

REPORT INFORMATION
  Report Type: Spontaneous
  Country: US (occurrence: US)
  Receive Date: 20180427
  Receipt Date: 20180529
  Transmission Date: 20180711
  Serious: No
  Sender: FDA-Public Use
  Company Number: US-GLAXOSMITHKLINE-US2018072712

PATIENT
  Age: 85 Year
  Sex: Male
  Weight: 84.81 kg

DRUGS (12)
  1. METFORMIN [Concomitant]
     Active Substance: METFORMIN HYDROCHLORIDE
  2. COREG [Concomitant]
     Active Substance: CARVEDILOL
  3. OMEGA 3 [Concomitant]
     Active Substance: OMEGA-3 FATTY ACIDS
  4. COQ10 [Concomitant]
     Active Substance: UBIDECARENONE
  5. SAW PALMETTO [Concomitant]
     Active Substance: HERBALS\SAW PALMETTO
  6. WARFARIN [Concomitant]
     Active Substance: WARFARIN
  7. ANORO ELLIPTA [Suspect]
     Active Substance: UMECLIDINIUM BROMIDE\VILANTEROL TRIFENATATE
     Indication: CHRONIC OBSTRUCTIVE PULMONARY DISEASE
     Dosage: 1 PUFF(S), 1D
     Route: 055
     Dates: start: 20180423
  8. CARDURA [Concomitant]
     Active Substance: DOXAZOSIN MESYLATE
  9. LOSARTAN. [Concomitant]
     Active Substance: LOSARTAN
  10. MAGNESIUM [Concomitant]
     Active Substance: MAGNESIUM
  11. ZINC. [Concomitant]
     Active Substance: ZINC
  12. HYDROCHLOROTHIAZIDE. [Concomitant]
     Active Substance: HYDROCHLOROTHIAZIDE

REACTIONS (3)
  - Cough [Not Recovered/Not Resolved]
  - Nocturia [Not Recovered/Not Resolved]
  - Dysphonia [Not Recovered/Not Resolved]

NARRATIVE: CASE EVENT DATE: 201804
